FAERS Safety Report 4312831-7 (Version None)
Quarter: 2004Q1

REPORT INFORMATION
  Report Type: 
  Country: None (occurrence: None)
  Receive Date: 20040304
  Receipt Date: 20040224
  Transmission Date: 20041129
  Serious: Yes (Death, Hospitalization)
  Sender: FDA-Public Use
  Company Number: J081-AC002T-3098

PATIENT
  Age: 76 Year
  Sex: Male
  Weight: 56 kg

DRUGS (11)
  1. DONEPEZIL HCL [Suspect]
     Indication: DEMENTIA ALZHEIMER'S TYPE
     Dosage: SEE IMAGE
     Route: 048
     Dates: start: 20020620, end: 20020703
  2. DONEPEZIL HCL [Suspect]
     Indication: DEMENTIA ALZHEIMER'S TYPE
     Dosage: SEE IMAGE
     Route: 048
     Dates: start: 20020704, end: 20030407
  3. NORVASC [Concomitant]
  4. LASIX [Concomitant]
  5. LANIRAPID (METILDIGOXIN) [Concomitant]
  6. WARFARIN SODIUM [Concomitant]
  7. CEROCRAL (IFENPRODIL TARTRATE) [Concomitant]
  8. POLLAKISU (OXYBUTYNIN HYDROCHLORIDE) [Concomitant]
  9. MAGNESIUM OXIDE (MAGNESIUM OXIDE) [Concomitant]
  10. PURSENNID (SENNA LEAF) [Concomitant]
  11. ARTANE [Concomitant]

REACTIONS (10)
  - ATELECTASIS [None]
  - ATRIAL FIBRILLATION [None]
  - BRADYCARDIA [None]
  - CARDIO-RESPIRATORY ARREST [None]
  - CLONIC CONVULSION [None]
  - HYPOXIC ENCEPHALOPATHY [None]
  - PNEUMONIA [None]
  - PNEUMONIA ASPIRATION [None]
  - RESPIRATORY DEPRESSION [None]
  - SHOCK [None]
